FAERS Safety Report 6369774-7 (Version None)
Quarter: 2009Q3

REPORT INFORMATION
  Report Type: 
  Country: None (occurrence: None)
  Receive Date: 20090918
  Receipt Date: 20090831
  Transmission Date: 20100115
  Serious: Yes (Hospitalization)
  Sender: FDA-Public Use
  Company Number: JPI-P-007339

PATIENT
  Age: 54 Year
  Sex: Female
  Weight: 103.8737 kg

DRUGS (14)
  1. XYREM [Suspect]
     Indication: SOMNOLENCE
     Dosage: SEE IMAGE
     Route: 048
     Dates: start: 20080810, end: 20080801
  2. XYREM [Suspect]
     Indication: SOMNOLENCE
     Dosage: SEE IMAGE
     Route: 048
     Dates: start: 20080806, end: 20080808
  3. XYREM [Suspect]
     Indication: SOMNOLENCE
     Dosage: SEE IMAGE
     Route: 048
     Dates: start: 20080809, end: 20080809
  4. XYREM [Suspect]
     Indication: SOMNOLENCE
     Dosage: SEE IMAGE
     Route: 048
     Dates: start: 20090114, end: 20090829
  5. XYREM [Suspect]
     Indication: SOMNOLENCE
     Dosage: SEE IMAGE
     Route: 048
     Dates: start: 20080801
  6. PANTOPRAZOLE SODIUM [Concomitant]
  7. DICYCLOMINE [Concomitant]
  8. CHLORDIAZEPOXIDE [Concomitant]
  9. DILAUDID [Concomitant]
  10. FENOFIBRATE [Concomitant]
  11. VALSARTAN [Concomitant]
  12. METFORMIN HCL [Concomitant]
  13. PREGABALIN [Concomitant]
  14. SUCRALFATE [Concomitant]

REACTIONS (30)
  - BLISTER [None]
  - BLOOD PRESSURE INCREASED [None]
  - CONDITION AGGRAVATED [None]
  - CONSTIPATION [None]
  - CONTUSION [None]
  - CRYING [None]
  - DEPRESSION [None]
  - DIZZINESS [None]
  - DRY MOUTH [None]
  - DYSKINESIA [None]
  - DYSPEPSIA [None]
  - ERYTHEMA [None]
  - FAECES DISCOLOURED [None]
  - FEELING ABNORMAL [None]
  - FEELING DRUNK [None]
  - GASTROOESOPHAGEAL REFLUX DISEASE [None]
  - HEADACHE [None]
  - HYPERHIDROSIS [None]
  - HYPERTENSION [None]
  - INSOMNIA [None]
  - IRRITABLE BOWEL SYNDROME [None]
  - MIGRAINE [None]
  - MOVEMENT DISORDER [None]
  - PAIN [None]
  - PAIN IN EXTREMITY [None]
  - POST PROCEDURAL DISCOMFORT [None]
  - PROCEDURAL PAIN [None]
  - SOMNOLENCE [None]
  - TREMOR [None]
  - VOMITING [None]
